FAERS Safety Report 11449051 (Version 1)
Quarter: 2015Q3

REPORT INFORMATION
  Report Type: Spontaneous
  Country: US (occurrence: US)
  Receive Date: 20150902
  Receipt Date: 20150902
  Transmission Date: 20151125
  Serious: No
  Sender: FDA-Public Use
  Company Number: US-ELI_LILLY_AND_COMPANY-US201508001600

PATIENT
  Sex: Male

DRUGS (3)
  1. TRULICITY [Suspect]
     Active Substance: DULAGLUTIDE
     Indication: BLOOD TRIGLYCERIDES
  2. TRULICITY [Suspect]
     Active Substance: DULAGLUTIDE
     Indication: GLYCOSYLATED HAEMOGLOBIN INCREASED
     Dosage: UNK, WEEKLY (1/W)
     Route: 065
     Dates: start: 20150804
  3. METFORMIN [Concomitant]
     Active Substance: METFORMIN HYDROCHLORIDE
     Route: 065

REACTIONS (3)
  - Injection site haemorrhage [Unknown]
  - Drug dose omission [Unknown]
  - Off label use [Unknown]

NARRATIVE: CASE EVENT DATE: 20150804
